FAERS Safety Report 16359453 (Version 3)
Quarter: 2019Q2

REPORT INFORMATION
  Report Type: Spontaneous
  Country: DK (occurrence: DK)
  Receive Date: 20190528
  Receipt Date: 20190624
  Transmission Date: 20190711
  Serious: Yes (Death, Other)
  Sender: FDA-Public Use
  Company Number: DK-AUROBINDO-AUR-APL-2019-028858

PATIENT

DRUGS (9)
  1. TRAMADOL AUROBINDO, HARD CAPSULES 50 MG [Suspect]
     Active Substance: TRAMADOL
     Indication: PAIN
     Dosage: 50 MILLIGRAM, AS NECESSARY, STRENGTH: 50 MG. DOSAGE: 1 CAPSULE AT A MAXIMUM OF 3 TIMES DAILY
     Route: 048
  2. VERAPAMIL HYDROCHLORIDE. [Suspect]
     Active Substance: VERAPAMIL HYDROCHLORIDE
     Indication: CLUSTER HEADACHE
     Dosage: 480 MILLIGRAM, DAILY
     Route: 048
     Dates: start: 20170919
  3. NORITREN [Suspect]
     Active Substance: NORTRIPTYLINE HYDROCHLORIDE
     Indication: DEPRESSION
     Dosage: 50 MILLIGRAM, DAILY
     Route: 048
     Dates: start: 20140121
  4. KETOGAN [DIMETHYL-3,3-DIPHENYL-1-METHYLALLYLAMINE HCL;KETOBEMIDONE HYDROCHLORIDE] [Suspect]
     Active Substance: DIMETHYLAMINODIPHENYLBUTENE HYDROCHLORIDE\KETOBEMIDONE HYDROCHLORIDE
     Indication: PAIN
     Dosage: 1 DOSAGE FORM, AS NECESSARY,STRENGTH: 5 + 25 MG. DOSAGE: 1 TABLET, AT MOST 3 TIMES DAILY
     Route: 048
     Dates: start: 20141114
  5. METOCLOPRAMIDE ACCORD [Suspect]
     Active Substance: METOCLOPRAMIDE
     Indication: VOMITING
     Dosage: 10 MILLIGRAM, AS NECESSARY,STRENGTH: 10 MG. DOSAGE: 1 TABLET, AT MOST 3 TIMES DAILY
     Route: 048
     Dates: start: 20140829
  6. LAMOTRIGINE. [Concomitant]
     Active Substance: LAMOTRIGINE
     Indication: PAIN
     Dosage: 100 MILLIGRAM, DAILY
     Route: 048
     Dates: start: 20141008
  7. PREGABALIN. [Suspect]
     Active Substance: PREGABALIN
     Indication: ANXIETY
     Dosage: 300 MILLIGRAM, DAILY
     Route: 048
     Dates: start: 20160708
  8. AMITRIPTYLINE HYDROCHLORIDE. [Suspect]
     Active Substance: AMITRIPTYLINE HYDROCHLORIDE
     Indication: DEPRESSION
     Dosage: 50 MILLIGRAM, DAILY
     Route: 048
     Dates: start: 20140617
  9. CLONAZEPAM. [Suspect]
     Active Substance: CLONAZEPAM
     Indication: PRODUCT USED FOR UNKNOWN INDICATION
     Dosage: UNK, DOSAGE: UNKNOWN. STRENGTH: UNKNOWN
     Route: 048

REACTIONS (3)
  - Respiratory depression [Fatal]
  - Toxicity to various agents [Fatal]
  - Sedation [Fatal]

NARRATIVE: CASE EVENT DATE: 20190303
